FAERS Safety Report 5236123-7 (Version None)
Quarter: 2007Q1

REPORT INFORMATION
  Report Type: 
  Country: None (occurrence: None)
  Receive Date: 20070212
  Receipt Date: 20070201
  Transmission Date: 20070707
  Serious: Yes (Hospitalization, Other)
  Sender: FDA-Public Use
  Company Number: CH-AMGEN-UK202728

PATIENT
  Sex: Female
  Weight: 103 kg

DRUGS (7)
  1. ARANESP [Suspect]
     Indication: DIALYSIS
     Route: 058
     Dates: start: 20050830
  2. ATENOLOL [Concomitant]
     Route: 048
     Dates: start: 20050830
  3. CALCIUM ACETATE [Concomitant]
     Route: 048
     Dates: start: 20050830
  4. CANDESARTAN [Concomitant]
     Route: 048
     Dates: start: 20051115
  5. DOXAZOSIN MESYLATE [Concomitant]
     Route: 048
     Dates: start: 20050830
  6. ESOMEPRAZOLE MAGNESIUM [Concomitant]
     Route: 048
     Dates: start: 20061206
  7. CALCITRIOL [Concomitant]
     Route: 048
     Dates: start: 20050830

REACTIONS (3)
  - ANAEMIA [None]
  - APLASIA PURE RED CELL [None]
  - HAEMOGLOBIN DECREASED [None]
